FAERS Safety Report 4466885-8 (Version None)
Quarter: 2004Q4

REPORT INFORMATION
  Report Type: 
  Country: None (occurrence: None)
  Receive Date: 20041006
  Receipt Date: 20040930
  Transmission Date: 20050328
  Serious: Yes (Hospitalization)
  Sender: FDA-Public Use
  Company Number: US-BRISTOL-MYERS SQUIBB COMPANY-12717484

PATIENT
  Age: 71 Year
  Sex: Female
  Weight: 67 kg

DRUGS (2)
  1. CETUXIMAB [Suspect]
     Indication: PANCREATIC CARCINOMA
     Dosage: THERAPY INITIATED 01-AUG-2004,COURSE 2 INITIATED 14-SEPT-04.TOTAL DOSE THIS COURSE 810MG
     Route: 042
     Dates: start: 20040914, end: 20040914
  2. GEMCITABINE [Suspect]
     Indication: PANCREATIC CARCINOMA
     Dosage: THERAPY INITIATED 01-AUG-2004.COURSE 2 INITIATED 14-SEPT-04.TOTAL DOSE THIS COURSE 3240MG
     Dates: start: 20040914, end: 20040914

REACTIONS (2)
  - HYPERBILIRUBINAEMIA [None]
  - PULMONARY EMBOLISM [None]
